FAERS Safety Report 7774797-7 (Version None)
Quarter: 2011Q3

REPORT INFORMATION
  Report Type: 
  Country: None (occurrence: None)
  Receive Date: 20110923
  Receipt Date: 20110921
  Transmission Date: 20111222
  Serious: Yes (Other)
  Sender: FDA-Public Use
  Company Number: GB-PFIZER INC-2011225390

PATIENT
  Age: 35 Year
  Sex: Female
  Weight: 79 kg

DRUGS (8)
  1. VARENICLINE TARTRATE [Suspect]
     Dosage: UNK
     Dates: start: 20110711, end: 20110725
  2. GAVISCON [Concomitant]
     Dosage: UNK
     Dates: start: 20110629, end: 20110729
  3. VENLAFAXINE [Concomitant]
     Dosage: UNK
     Dates: start: 20110527, end: 20110624
  4. TRANEXAMIC ACID [Concomitant]
     Dosage: UNK
     Dates: start: 20110705, end: 20110707
  5. AMITRIPTYLINE HYDROCHLORIDE [Concomitant]
     Dosage: UNK
     Dates: start: 20110606, end: 20110704
  6. LANSOPRAZOLE [Concomitant]
     Dosage: UNK
     Dates: start: 20110527, end: 20110830
  7. GAVISCON [Concomitant]
     Dosage: UNK
     Dates: start: 20110527, end: 20110626
  8. VENLAFAXINE [Concomitant]
     Dosage: UNK
     Dates: start: 20110629, end: 20110727

REACTIONS (4)
  - SELF-INJURIOUS IDEATION [None]
  - FATIGUE [None]
  - SUICIDAL IDEATION [None]
  - DEPRESSION [None]
